FAERS Safety Report 23433048 (Version 1)
Quarter: 2024Q1

REPORT INFORMATION
  Report Type: Spontaneous
  Country: BR (occurrence: BR)
  Receive Date: 20240123
  Receipt Date: 20240123
  Transmission Date: 20240409
  Serious: Yes (Other)
  Sender: FDA-Public Use
  Company Number: BR-BAYER-2024A006230

PATIENT
  Age: 55 Year
  Sex: Male
  Weight: 106 kg

DRUGS (3)
  1. STIVARGA [Suspect]
     Active Substance: REGORAFENIB
     Indication: Malignant peritoneal neoplasm
     Dosage: 160 MG, QD EVERY 21 DAYS AND A BREAK FOR 7 DAYS
     Dates: start: 2023
  2. STIVARGA [Suspect]
     Active Substance: REGORAFENIB
     Indication: Gastrointestinal carcinoma
     Dosage: 80 MG, QD  FOR 42 DAYS STRAIGHT WITHOUT A BREAK
  3. RIVOTRIL [Concomitant]
     Active Substance: CLONAZEPAM
     Dosage: 0.25 MG 1 TABLET AT NIGHT

REACTIONS (3)
  - Malignant peritoneal neoplasm [None]
  - Gastrointestinal carcinoma [None]
  - Off label use [None]

NARRATIVE: CASE EVENT DATE: 20230101
